FAERS Safety Report 20567630 (Version 4)
Quarter: 2022Q4

REPORT INFORMATION
  Report Type: Spontaneous
  Country: US (occurrence: US)
  Receive Date: 20220308
  Receipt Date: 20221017
  Transmission Date: 20230112
  Serious: Yes (Hospitalization, Other)
  Sender: FDA-Public Use
  Company Number: US-PFIZER INC-202200325030

PATIENT
  Age: 66 Year
  Sex: Female

DRUGS (1)
  1. XELJANZ [Suspect]
     Active Substance: TOFACITINIB CITRATE
     Indication: Rheumatoid arthritis
     Dosage: 1 TAB TWICE DAILY
     Route: 048
     Dates: start: 202110

REACTIONS (3)
  - Rotator cuff repair [Unknown]
  - Rheumatoid arthritis [Unknown]
  - Spinal operation [Unknown]

NARRATIVE: CASE EVENT DATE: 20211201
